FAERS Safety Report 6502589-5 (Version None)
Quarter: 2009Q4

REPORT INFORMATION
  Report Type: 
  Country: None (occurrence: None)
  Receive Date: 20091127
  Receipt Date: 20090902
  Transmission Date: 20100525
  Serious: No
  Sender: FDA-Public Use
  Company Number: 001072

PATIENT
  Sex: Female
  Weight: 77.5 kg

DRUGS (11)
  1. LACOSAMIDE [Suspect]
     Indication: CONVULSION
     Dosage: (100 MG QD ORAL), (50 MG QD ORAL), (100 MG QD ORAL), (400 MG, 400 MG OTAL DAILY DOSE ORAL)
     Route: 048
     Dates: start: 20090604, end: 20090607
  2. LACOSAMIDE [Suspect]
     Indication: CONVULSION
     Dosage: (100 MG QD ORAL), (50 MG QD ORAL), (100 MG QD ORAL), (400 MG, 400 MG OTAL DAILY DOSE ORAL)
     Route: 048
     Dates: start: 20090608, end: 20090614
  3. LACOSAMIDE [Suspect]
     Indication: CONVULSION
     Dosage: (100 MG QD ORAL), (50 MG QD ORAL), (100 MG QD ORAL), (400 MG, 400 MG OTAL DAILY DOSE ORAL)
     Route: 048
     Dates: start: 20090615, end: 20090701
  4. LACOSAMIDE [Suspect]
     Indication: CONVULSION
     Dosage: (100 MG QD ORAL), (50 MG QD ORAL), (100 MG QD ORAL), (400 MG, 400 MG OTAL DAILY DOSE ORAL)
     Route: 048
     Dates: start: 20090701
  5. ABILIFY [Concomitant]
  6. MOTRIN [Concomitant]
  7. VALIUM [Concomitant]
  8. DIASTAT [Concomitant]
  9. MIRENA [Concomitant]
  10. FERGON [Concomitant]
  11. DEPAKOTE [Concomitant]

REACTIONS (10)
  - ABDOMINAL PAIN UPPER [None]
  - AGGRESSION [None]
  - ANTISOCIAL BEHAVIOUR [None]
  - CONVULSION [None]
  - CRYING [None]
  - FATIGUE [None]
  - HEADACHE [None]
  - NAUSEA [None]
  - SOMNOLENCE [None]
  - TREMOR [None]
